FAERS Safety Report 8375173-9 (Version None)
Quarter: 2012Q2

REPORT INFORMATION
  Report Type: 
  Country: None (occurrence: None)
  Receive Date: 20120521
  Receipt Date: 20120516
  Transmission Date: 20120825
  Serious: Yes (Other)
  Sender: FDA-Public Use
  Company Number: PHFR2012GB002982

PATIENT
  Age: 33 Year
  Sex: Female

DRUGS (2)
  1. PROCHLORPERAZINE [Suspect]
     Dosage: 3 MG, ONCE/SINGLE (TOTAL DOSE)
     Route: 002
     Dates: start: 20120418, end: 20120418
  2. DICLOFENAC SODIUM [Suspect]
     Dosage: 50 MG, ONCE/SINGLE (TOTAL DOSE)
     Route: 048
     Dates: start: 20120418, end: 20120418

REACTIONS (1)
  - TACHYCARDIA [None]
